FAERS Safety Report 6679547-3 (Version None)
Quarter: 2010Q2

REPORT INFORMATION
  Report Type: 
  Country: None (occurrence: None)
  Receive Date: 20100413
  Receipt Date: 20100401
  Transmission Date: 20101027
  Serious: Yes (Hospitalization, Other)
  Sender: FDA-Public Use
  Company Number: PHHY2008ZA33972

PATIENT
  Sex: Male

DRUGS (2)
  1. GLEEVEC [Suspect]
     Indication: CHRONIC MYELOID LEUKAEMIA
     Dosage: UNK
     Dates: start: 20030910
  2. GLEEVEC [Suspect]
     Dosage: 600 MG, UNK

REACTIONS (3)
  - IMMOBILE [None]
  - PLATELET COUNT DECREASED [None]
  - POLYARTHRITIS [None]
